FAERS Safety Report 4874374-1 (Version None)
Quarter: 2005Q4

REPORT INFORMATION
  Report Type: 
  Country: None (occurrence: None)
  Receive Date: 20051201
  Receipt Date: 20050810
  Transmission Date: 20060501
  Serious: No
  Sender: FDA-Public Use
  Company Number: 2005PV001038

PATIENT
  Age: 75 Year
  Sex: Female
  Weight: 108.8633 kg

DRUGS (5)
  1. BYETTA [Suspect]
     Indication: DIABETES MELLITUS NON-INSULIN-DEPENDENT
     Dosage: 5 MCG; BID; SC
     Route: 058
     Dates: start: 20050803
  2. NOVOLOG [Concomitant]
  3. GLUCOPHAGE [Concomitant]
  4. AVAPRO [Concomitant]
  5. PREDNISONE [Concomitant]

REACTIONS (2)
  - FEAR [None]
  - NAUSEA [None]
